FAERS Safety Report 17416670 (Version 2)
Quarter: 2020Q3

REPORT INFORMATION
  Report Type: Report from Study
  Country: CO (occurrence: CO)
  Receive Date: 20200213
  Receipt Date: 20200401
  Transmission Date: 20201104
  Serious: Yes (Hospitalization, Other)
  Sender: FDA-Public Use
  Company Number: NVSC2020CO039684

PATIENT
  Age: 64 Year
  Sex: Male
  Weight: 64 kg

DRUGS (3)
  1. TIOTROPIUM BROMIDE [Concomitant]
     Active Substance: TIOTROPIUM BROMIDE
     Indication: ASTHMA
     Dosage: 2 DF EVERY 24 HOURS
     Route: 048
  2. MONTELUKAST [Suspect]
     Active Substance: MONTELUKAST SODIUM
     Indication: ASTHMA
     Dosage: 10 MG, QD
     Route: 048
  3. XOLAIR [Suspect]
     Active Substance: OMALIZUMAB
     Indication: ASTHMA
     Dosage: 150 MG, QMO
     Route: 058
     Dates: start: 20180111, end: 20191021

REACTIONS (5)
  - Asphyxia [Recovering/Resolving]
  - Inguinal hernia [Unknown]
  - Road traffic accident [Recovered/Resolved]
  - Asthmatic crisis [Recovered/Resolved]
  - Hand fracture [Recovered/Resolved]

NARRATIVE: CASE EVENT DATE: 201907
